FAERS Safety Report 5024004-3 (Version None)
Quarter: 2006Q2

REPORT INFORMATION
  Report Type: 
  Country: None (occurrence: None)
  Receive Date: 20060426
  Receipt Date: 20060323
  Transmission Date: 20061013
  Serious: Yes (Other)
  Sender: FDA-Public Use
  Company Number: 2006042364

PATIENT
  Sex: Male

DRUGS (2)
  1. LYRICA [Suspect]
     Dates: start: 20060301
  2. ALL OTHER THERAPEUTIC PRODUCTS (ALL OTHER THERAPEUTIC PODUCTS) [Concomitant]

REACTIONS (1)
  - MYALGIA [None]
